FAERS Safety Report 5288021-0 (Version None)
Quarter: 2007Q2

REPORT INFORMATION
  Report Type: 
  Country: None (occurrence: None)
  Receive Date: 20070405
  Receipt Date: 20070322
  Transmission Date: 20071010
  Serious: Yes (Other)
  Sender: FDA-Public Use
  Company Number: PHNU2007DE01305

PATIENT
  Sex: Male

DRUGS (3)
  1. LAMISIL [Suspect]
     Indication: ONYCHOMYCOSIS
     Dosage: 1 TABLET/DAY FOR 28 DAYS
     Route: 048
  2. LAMISIL [Suspect]
     Dosage: 1 DF, QD
     Route: 048
     Dates: start: 20061001
  3. LAMISIL [Suspect]
     Dosage: 1 DF, QD
     Route: 048

REACTIONS (2)
  - BLOOD CREATININE INCREASED [None]
  - NEPHRITIS [None]
